FAERS Safety Report 9033946 (Version 1)
Quarter: 2013Q1

REPORT INFORMATION
  Report Type: Spontaneous
  Country: US (occurrence: US)
  Receive Date: 20130128
  Receipt Date: 20130128
  Transmission Date: 20140127
  Serious: Yes (Other)
  Sender: FDA-Public Use
  Company Number: US-AMGEN-USASP2012066624

PATIENT
  Age: 55 Year
  Sex: Female
  Weight: 124.7 kg

DRUGS (12)
  1. ENBREL [Suspect]
     Indication: RHEUMATOID ARTHRITIS
     Dosage: 50 MG, QWK
     Route: 058
  2. CYMBALTA [Concomitant]
     Dosage: 20 MG, UNK
  3. NEXIUM                             /01479302/ [Concomitant]
     Dosage: 20 MG, UNK
  4. METHOTREXATE [Concomitant]
     Dosage: 2.5 MG, UNK
  5. TRAMADOL HCL [Concomitant]
     Dosage: 50 MG, UNK
  6. FOLIC ACID [Concomitant]
     Dosage: 1 MG, UNK
  7. MIRAPEX [Concomitant]
     Dosage: 1 MG, UNK
  8. CINNAMON                           /01647501/ [Concomitant]
     Dosage: 500 MG, UNK
  9. TYLENOL ARTHRITIS [Concomitant]
     Dosage: 650 MG, UNK
  10. FISH OIL [Concomitant]
     Dosage: UNK
  11. CENTRUM SILVER                     /02363801/ [Concomitant]
     Dosage: UNK
  12. SYNTHROID [Concomitant]
     Dosage: 100 MUG, UNK

REACTIONS (1)
  - Appendicectomy [Unknown]
